FAERS Safety Report 4324675-0 (Version None)
Quarter: 2004Q1

REPORT INFORMATION
  Report Type: 
  Country: None (occurrence: None)
  Receive Date: 20040325
  Receipt Date: 20040325
  Transmission Date: 20041129
  Serious: Yes (Hospitalization)
  Sender: FDA-Public Use
  Company Number: None

PATIENT
  Age: 54 Year
  Sex: Male

DRUGS (1)
  1. HEPARIN [Suspect]
     Dates: start: 20040326, end: 20040316

REACTIONS (1)
  - HEPARIN-INDUCED THROMBOCYTOPENIA [None]
